FAERS Safety Report 23784991 (Version 2)
Quarter: 2024Q2

REPORT INFORMATION
  Report Type: Report from Study
  Country: KR (occurrence: None)
  Receive Date: 20240425
  Receipt Date: 20240618
  Transmission Date: 20240716
  Serious: Yes (Other)
  Sender: FDA-Public Use
  Company Number: 2024A093295

PATIENT
  Age: 973 Month
  Sex: Female

DRUGS (4)
  1. OSIMERTINIB [Suspect]
     Active Substance: OSIMERTINIB
     Indication: HER2 mutant non-small cell lung cancer
     Route: 048
     Dates: start: 20231214, end: 20240529
  2. OSIMERTINIB [Suspect]
     Active Substance: OSIMERTINIB
     Indication: HER2 mutant non-small cell lung cancer
     Route: 048
     Dates: start: 20240616
  3. SYNTHYROID TAB [Concomitant]
     Indication: Angiogram
     Route: 048
     Dates: start: 20091128
  4. DIC AMAX 1000 TAB [Concomitant]
     Indication: Angiogram
     Route: 048
     Dates: start: 20240206

REACTIONS (1)
  - Renal failure [Recovering/Resolving]

NARRATIVE: CASE EVENT DATE: 20240411
